FAERS Safety Report 25040190 (Version 2)
Quarter: 2025Q1

REPORT INFORMATION
  Report Type: Report from Study
  Country: US (occurrence: US)
  Receive Date: 20250305
  Receipt Date: 20250309
  Transmission Date: 20250409
  Serious: No
  Sender: BRISTOL-MYERS SQUIBB COMPANY
  Company Number: US-BRISTOL-MYERS SQUIBB COMPANY-2025-032475

PATIENT
  Age: 85 Year
  Sex: Male

DRUGS (1)
  1. ELIQUIS [Suspect]
     Active Substance: APIXABAN
     Indication: Product used for unknown indication

REACTIONS (7)
  - Pruritus [Unknown]
  - Scratch [Unknown]
  - Contusion [Unknown]
  - Sleep disorder [Unknown]
  - Wound haemorrhage [Unknown]
  - Thermal burn [Unknown]
  - Increased tendency to bruise [Unknown]
